FAERS Safety Report 13506308 (Version 1)
Quarter: 2017Q2

REPORT INFORMATION
  Report Type: Spontaneous
  Country: US (occurrence: US)
  Receive Date: 20170502
  Receipt Date: 20170502
  Transmission Date: 20170830
  Serious: Yes (Other)
  Sender: FDA-Public Use
  Company Number: US-ROCHE-1282985

PATIENT
  Age: 33 Year
  Sex: Male

DRUGS (3)
  1. BEVACIZUMAB [Suspect]
     Active Substance: BEVACIZUMAB
     Dosage: RESTARTED
     Route: 065
  2. TEMOZOLOMIDE. [Concomitant]
     Active Substance: TEMOZOLOMIDE
     Indication: CHOROID PLEXUS PAPILLOMA
  3. BEVACIZUMAB [Suspect]
     Active Substance: BEVACIZUMAB
     Indication: CHOROID PLEXUS PAPILLOMA
     Dosage: DISCONTINUED
     Route: 065

REACTIONS (1)
  - Posterior reversible encephalopathy syndrome [Unknown]
